FAERS Safety Report 6684771-X (Version None)
Quarter: 2010Q2

REPORT INFORMATION
  Report Type: 
  Country: None (occurrence: None)
  Receive Date: 20100416
  Receipt Date: 20100406
  Transmission Date: 20101027
  Serious: Yes (Hospitalization)
  Sender: FDA-Public Use
  Company Number: DE-WATSON-2010-04679

PATIENT
  Age: 16 Year
  Sex: Female

DRUGS (2)
  1. DOXEPIN (WATSON LABORATORIES) [Suspect]
     Indication: SUICIDE ATTEMPT
     Dosage: UNK
     Route: 048
  2. MOCLOBEMIDE [Suspect]
     Indication: SUICIDE ATTEMPT
     Dosage: UNK
     Route: 048

REACTIONS (5)
  - COMA [None]
  - HYPOTHERMIA [None]
  - INTENTIONAL OVERDOSE [None]
  - RENAL FAILURE ACUTE [None]
  - RHABDOMYOLYSIS [None]
